FAERS Safety Report 15879870 (Version 22)
Quarter: 2020Q3

REPORT INFORMATION
  Report Type: Report from Study
  Country: CO (occurrence: CO)
  Receive Date: 20190128
  Receipt Date: 20200810
  Transmission Date: 20201102
  Serious: Yes (Hospitalization, Other)
  Sender: FDA-Public Use
  Company Number: CO-ACTELION-A-CH2019-185418

PATIENT
  Age: 8 Year
  Sex: Female
  Weight: 26 kg

DRUGS (8)
  1. MIGLUSTAT. [Suspect]
     Active Substance: MIGLUSTAT
     Dosage: 100 MG, TID
     Route: 048
     Dates: start: 20190903, end: 20191228
  2. MIGLUSTAT. [Suspect]
     Active Substance: MIGLUSTAT
     Dosage: 100 MG, TID
     Route: 048
     Dates: start: 20190321, end: 20190516
  3. MIGLUSTAT. [Suspect]
     Active Substance: MIGLUSTAT
     Indication: NIEMANN-PICK DISEASE
     Dosage: 100 MG, BID
     Route: 048
     Dates: start: 20190222, end: 20190320
  4. LEVETIRACETAM. [Concomitant]
     Active Substance: LEVETIRACETAM
  5. MIGLUSTAT. [Suspect]
     Active Substance: MIGLUSTAT
     Dosage: 100 MG, TID
     Route: 048
     Dates: start: 20190529, end: 20190623
  6. MIGLUSTAT. [Suspect]
     Active Substance: MIGLUSTAT
     Dosage: 100 MG, TID
     Route: 048
     Dates: start: 20200723
  7. MIGLUSTAT. [Suspect]
     Active Substance: MIGLUSTAT
     Dosage: 100 MG, TID
     Route: 048
     Dates: start: 20200103
  8. MIGLUSTAT. [Suspect]
     Active Substance: MIGLUSTAT
     Dosage: 100 MG, BID
     Route: 048
     Dates: start: 20190624, end: 20190831

REACTIONS (29)
  - Influenza [Not Recovered/Not Resolved]
  - Cyanosis [Not Recovered/Not Resolved]
  - Seizure [Not Recovered/Not Resolved]
  - Alopecia [Not Recovered/Not Resolved]
  - Hypoxia [Not Recovered/Not Resolved]
  - Hospitalisation [Unknown]
  - Oxygen saturation decreased [Not Recovered/Not Resolved]
  - Accidental underdose [Unknown]
  - Respiratory tract infection viral [Recovering/Resolving]
  - Spinal deformity [Not Recovered/Not Resolved]
  - Incorrect dose administered [Unknown]
  - Productive cough [Not Recovered/Not Resolved]
  - Underweight [Recovering/Resolving]
  - Spinal column injury [Unknown]
  - General physical health deterioration [Not Recovered/Not Resolved]
  - Respiratory tract infection [Not Recovered/Not Resolved]
  - Apathy [Not Recovered/Not Resolved]
  - Inappropriate schedule of product administration [Unknown]
  - Intentional dose omission [Not Recovered/Not Resolved]
  - Respiratory disorder [Recovering/Resolving]
  - Secretion discharge [Recovering/Resolving]
  - Choking [Not Recovered/Not Resolved]
  - Dyskinesia [Not Recovered/Not Resolved]
  - Diarrhoea [Not Recovered/Not Resolved]
  - Atrophy [Not Recovered/Not Resolved]
  - Therapy cessation [Unknown]
  - Product dose omission issue [Unknown]
  - Cough [Not Recovered/Not Resolved]
  - Somnolence [Not Recovered/Not Resolved]

NARRATIVE: CASE EVENT DATE: 201902
